FAERS Safety Report 14585492 (Version 4)
Quarter: 2019Q1

REPORT INFORMATION
  Report Type: Spontaneous
  Country: US (occurrence: US)
  Receive Date: 20180301
  Receipt Date: 20190308
  Transmission Date: 20190417
  Serious: No
  Sender: FDA-Public Use
  Company Number: US-PFIZER INC-2018081056

PATIENT
  Age: 68 Year
  Sex: Female
  Weight: 56 kg

DRUGS (2)
  1. IBRANCE [Suspect]
     Active Substance: PALBOCICLIB
     Indication: BREAST CANCER METASTATIC
     Dosage: 100 MG, CYCLIC (D1-21 Q28 DAYS/QD X 21 DAYS THEN 7 DAYS OFF)
     Route: 048
     Dates: start: 2016
  2. IBRANCE [Suspect]
     Active Substance: PALBOCICLIB
     Dosage: 100 MG, CYCLIC (1 TABLET DAILY- 21 DAYS THEN 7 DAYS OFF)
     Route: 048
     Dates: start: 201801

REACTIONS (4)
  - Neoplasm progression [Unknown]
  - Product dose omission [Unknown]
  - Memory impairment [Unknown]
  - Chest pain [Unknown]

NARRATIVE: CASE EVENT DATE: 20180220
